FAERS Safety Report 20203333 (Version 2)
Quarter: 2022Q1

REPORT INFORMATION
  Report Type: Report from Study
  Country: US (occurrence: US)
  Receive Date: 20211218
  Receipt Date: 20220215
  Transmission Date: 20220423
  Serious: Yes (Hospitalization, Other)
  Sender: FDA-Public Use
  Company Number: US-ABBVIE-21K-163-4027149-00

PATIENT
  Age: 59 Year
  Sex: Male
  Weight: 63.560 kg

DRUGS (6)
  1. HUMIRA [Suspect]
     Active Substance: ADALIMUMAB
     Indication: Colitis ulcerative
     Dosage: CITRATE FREE?DRUG END DATE TEXT: MAY OR JUN 2021
     Route: 058
     Dates: start: 2019, end: 202106
  2. HUMIRA [Suspect]
     Active Substance: ADALIMUMAB
     Dosage: CITRATE FREE?DRUG START DATE TEXT: MAY-JUN-2021
     Route: 058
     Dates: start: 202106, end: 20210629
  3. BALSALAZIDE [Concomitant]
     Active Substance: BALSALAZIDE
     Indication: Colitis ulcerative
  4. AMLODIPINE [Concomitant]
     Active Substance: AMLODIPINE BESYLATE
     Indication: Hypertension
  5. PFIZER-BIONTECH COVID-19 VACCINE [Concomitant]
     Active Substance: TOZINAMERAN
     Indication: COVID-19 immunisation
     Route: 030
     Dates: start: 20210322, end: 20210322
  6. PFIZER-BIONTECH COVID-19 VACCINE [Concomitant]
     Active Substance: TOZINAMERAN
     Route: 030
     Dates: start: 20210412, end: 20210412

REACTIONS (18)
  - Pancreatic injury [Not Recovered/Not Resolved]
  - Procedural complication [Not Recovered/Not Resolved]
  - Aspiration [Not Recovered/Not Resolved]
  - Oxygen saturation decreased [Not Recovered/Not Resolved]
  - Medical induction of coma [Recovered/Resolved]
  - Septic shock [Not Recovered/Not Resolved]
  - Musculoskeletal disorder [Unknown]
  - Pancreatitis acute [Not Recovered/Not Resolved]
  - Pulmonary oedema [Unknown]
  - Weight increased [Recovering/Resolving]
  - Gait inability [Not Recovered/Not Resolved]
  - Speech disorder [Not Recovered/Not Resolved]
  - Feeding disorder [Not Recovered/Not Resolved]
  - Impaired driving ability [Not Recovered/Not Resolved]
  - Impaired work ability [Not Recovered/Not Resolved]
  - Diabetes mellitus [Not Recovered/Not Resolved]
  - Post-traumatic stress disorder [Not Recovered/Not Resolved]
  - Cholelithiasis [Recovering/Resolving]

NARRATIVE: CASE EVENT DATE: 20210706
